FAERS Safety Report 8858605 (Version 2)
Quarter: 2012Q4

REPORT INFORMATION
  Report Type: 
  Country: US (occurrence: US)
  Receive Date: 20121024
  Receipt Date: 20121115
  Transmission Date: 20130627
  Serious: Yes (Hospitalization, Other)
  Sender: FDA-Public Use
  Company Number: US-BAYER-2012-107915

PATIENT
  Age: 65 Year
  Sex: Female

DRUGS (4)
  1. STIVARGA [Suspect]
     Indication: COLON CANCER
     Dosage: 40 mg, 4tablets, QD
     Route: 048
     Dates: start: 20120827, end: 20120904
  2. STIVARGA [Suspect]
     Indication: COLON CANCER
     Dosage: 40 mg, one tablet, QD
     Route: 048
     Dates: start: 20121016
  3. BENADRYL [Concomitant]
  4. PEPCID [Concomitant]

REACTIONS (11)
  - Blood bilirubin increased [Recovering/Resolving]
  - Pyrexia [Recovering/Resolving]
  - Glossitis [Recovering/Resolving]
  - Swollen tongue [Recovering/Resolving]
  - Exfoliative rash [Recovering/Resolving]
  - Confusional state [Recovering/Resolving]
  - Mucosal inflammation [None]
  - Malaise [None]
  - Pyrexia [Recovered/Resolved]
  - Dehydration [Recovered/Resolved]
  - Nausea [Recovering/Resolving]
